FAERS Safety Report 6788091-4 (Version None)
Quarter: 2010Q2

REPORT INFORMATION
  Report Type: 
  Country: None (occurrence: None)
  Receive Date: 20100623
  Receipt Date: 20081215
  Transmission Date: 20101027
  Serious: No
  Sender: FDA-Public Use
  Company Number: US-PFIZER INC-2007108072

PATIENT
  Sex: Female
  Weight: 58.967 kg

DRUGS (7)
  1. XALATAN [Suspect]
     Indication: GLAUCOMA
     Dosage: UNK
     Route: 047
     Dates: start: 20050101
  2. OPHTHALMOLOGICALS [Suspect]
     Dosage: UNK
     Route: 047
     Dates: start: 20080101, end: 20080101
  3. ATENOLOL [Concomitant]
  4. ISOSORBIDE MONONITRATE [Concomitant]
  5. SYNTHROID [Concomitant]
  6. LIPITOR [Concomitant]
  7. DIURETICS [Concomitant]
     Dosage: UNK

REACTIONS (9)
  - BLOOD THYROID STIMULATING HORMONE INCREASED [None]
  - EPIDERMAL GROWTH FACTOR RECEPTOR DECREASED [None]
  - EYE IRRITATION [None]
  - EYE PAIN [None]
  - EYE PRURITUS [None]
  - FOREIGN BODY SENSATION IN EYES [None]
  - INCORRECT DOSE ADMINISTERED [None]
  - LACRIMAL DISORDER [None]
  - MIDDLE INSOMNIA [None]
